FAERS Safety Report 7142279-1 (Version None)
Quarter: 2010Q4

REPORT INFORMATION
  Report Type: 
  Country: None (occurrence: None)
  Receive Date: 20101207
  Receipt Date: 20101130
  Transmission Date: 20110411
  Serious: No
  Sender: FDA-Public Use
  Company Number: US-PFIZER INC-2010160608

PATIENT
  Sex: Female
  Weight: 105 kg

DRUGS (5)
  1. PRISTIQ [Suspect]
     Dosage: 50 MG, 1X/DAY
     Route: 048
     Dates: start: 20100801
  2. ZANTAC [Concomitant]
     Indication: ABDOMINAL DISCOMFORT
     Dosage: UNK
  3. ATIVAN [Concomitant]
     Indication: INSOMNIA
     Dosage: 2 MG, AS NEEDED
  4. ATIVAN [Concomitant]
     Indication: ANXIETY
  5. PROVIGIL [Concomitant]
     Dosage: UNK

REACTIONS (3)
  - ABNORMAL DREAMS [None]
  - FATIGUE [None]
  - FEELING ABNORMAL [None]
